FAERS Safety Report 5455188-0 (Version None)
Quarter: 2007Q3

REPORT INFORMATION
  Report Type: 
  Country: None (occurrence: None)
  Receive Date: 20070918
  Receipt Date: 20070913
  Transmission Date: 20080115
  Serious: Yes (Hospitalization, Other)
  Sender: FDA-Public Use
  Company Number: PHEH2007US12022

PATIENT
  Sex: Male

DRUGS (1)
  1. EXJADE [Suspect]

REACTIONS (9)
  - BLAST CELLS PRESENT [None]
  - CHEST X-RAY ABNORMAL [None]
  - COUGH [None]
  - DYSPNOEA [None]
  - LEUKAEMIA [None]
  - LUNG INFILTRATION [None]
  - PNEUMONITIS [None]
  - PULMONARY CONGESTION [None]
  - PYREXIA [None]
